FAERS Safety Report 24551002 (Version 3)
Quarter: 2025Q3

REPORT INFORMATION
  Report Type: Spontaneous
  Country: MX (occurrence: MX)
  Receive Date: 20241025
  Receipt Date: 20250711
  Transmission Date: 20251020
  Serious: Yes (Hospitalization, Other)
  Sender: GLAXOSMITHKLINE
  Company Number: MX-GLAXOSMITHKLINE INC-MX2024AMR129318

PATIENT
  Age: 48 Year
  Sex: Female
  Weight: 60 kg

DRUGS (3)
  1. NUCALA [Suspect]
     Active Substance: MEPOLIZUMAB
     Indication: Chronic rhinosinusitis with nasal polyps
     Dosage: 100 MG, Q4W
  2. SERETIDE [Concomitant]
     Active Substance: FLUTICASONE PROPIONATE\SALMETEROL XINAFOATE
     Indication: Asthma
  3. CELESTAMINE [Concomitant]
     Active Substance: BETAMETHASONE\DEXCHLORPHENIRAMINE MALEATE
     Indication: Product used for unknown indication
     Dosage: 2.5 MG, QD

REACTIONS (9)
  - Blindness unilateral [Unknown]
  - Glaucoma [Unknown]
  - Demyelination [Unknown]
  - Eye injury [Unknown]
  - Symptom recurrence [Unknown]
  - Condition aggravated [Unknown]
  - Eye pruritus [Unknown]
  - Foreign body sensation in eyes [Unknown]
  - Eye allergy [Unknown]

NARRATIVE: CASE EVENT DATE: 20241001
